FAERS Safety Report 7815084-8 (Version None)
Quarter: 2011Q4

REPORT INFORMATION
  Report Type: 
  Country: None (occurrence: None)
  Receive Date: 20111014
  Receipt Date: 20111014
  Transmission Date: 20120403
  Serious: Yes (Hospitalization, Other)
  Sender: FDA-Public Use
  Company Number: None

PATIENT
  Age: 32 Year
  Sex: Female
  Weight: 106.14 kg

DRUGS (1)
  1. VIIBRYD [Suspect]
     Indication: DEPRESSION
     Route: 048
     Dates: start: 20110801, end: 20111006

REACTIONS (22)
  - DIZZINESS [None]
  - SWOLLEN TONGUE [None]
  - IRRITABILITY [None]
  - TREMOR [None]
  - MUSCLE TWITCHING [None]
  - DYSKINESIA [None]
  - PRURITUS [None]
  - OEDEMA MOUTH [None]
  - HEART RATE IRREGULAR [None]
  - HEADACHE [None]
  - SWELLING FACE [None]
  - VISION BLURRED [None]
  - PANIC ATTACK [None]
  - DYSPNOEA [None]
  - CHEST DISCOMFORT [None]
  - COORDINATION ABNORMAL [None]
  - AGITATION [None]
  - BALANCE DISORDER [None]
  - PARAESTHESIA [None]
  - HALLUCINATION [None]
  - ANXIETY [None]
  - DISTURBANCE IN ATTENTION [None]
